FAERS Safety Report 8367459-9 (Version None)
Quarter: 2012Q2

REPORT INFORMATION
  Report Type: 
  Country: None (occurrence: None)
  Receive Date: 20120517
  Receipt Date: 20120221
  Transmission Date: 20120825
  Serious: No
  Sender: FDA-Public Use
  Company Number: US-GLAXOSMITHKLINE-A0966726A

PATIENT
  Age: 75 Year
  Sex: Male

DRUGS (10)
  1. FLONASE [Concomitant]
  2. DIGOXIN [Concomitant]
  3. ZOCOR [Concomitant]
  4. SYNTHROID [Concomitant]
  5. NORVASC [Concomitant]
  6. OMEPRAZOLE [Concomitant]
  7. ASPIRIN [Concomitant]
  8. VOTRIENT [Suspect]
     Indication: RENAL CELL CARCINOMA
     Dosage: 400MG TWICE PER DAY
     Route: 048
     Dates: start: 20110401
  9. CARDIZEM [Concomitant]
  10. FLOMAX [Concomitant]

REACTIONS (4)
  - DIARRHOEA [None]
  - HYPERTENSION [None]
  - VOMITING [None]
  - NAUSEA [None]
